FAERS Safety Report 5852085-3 (Version None)
Quarter: 2008Q3

REPORT INFORMATION
  Report Type: 
  Country: None (occurrence: None)
  Receive Date: 20080819
  Receipt Date: 20080819
  Transmission Date: 20090109
  Serious: Yes (Hospitalization)
  Sender: FDA-Public Use
  Company Number: None

PATIENT
  Age: 35 Year
  Sex: Male
  Weight: 73.5 kg

DRUGS (8)
  1. WARFARIN SODIUM [Suspect]
     Indication: AORTIC VALVE REPLACEMENT
     Dosage: 5MG DAILY PO  (DURATION: PAST MONTH)
     Route: 048
  2. PROTONIX [Concomitant]
  3. LENOCYTE [Concomitant]
  4. ASPIRIN [Concomitant]
  5. LISINOPRIL [Concomitant]
  6. TOPROL-XL [Concomitant]
  7. LOMOTIL [Concomitant]
  8. VANCOMYCIN HYDROCHLORIDE [Concomitant]

REACTIONS (1)
  - HAEMATURIA [None]
